FAERS Safety Report 7920795-X (Version None)
Quarter: 2011Q4

REPORT INFORMATION
  Report Type: 
  Country: None (occurrence: None)
  Receive Date: 20111117
  Receipt Date: 20111110
  Transmission Date: 20120403
  Serious: Yes (Hospitalization, Other)
  Sender: FDA-Public Use
  Company Number: US-AMGEN-USASP2011059273

PATIENT
  Sex: Male

DRUGS (1)
  1. ENBREL [Suspect]
     Indication: RHEUMATOID ARTHRITIS
     Dosage: 50 MG, QWK
     Dates: start: 19990401

REACTIONS (10)
  - HIP ARTHROPLASTY [None]
  - DYSSTASIA [None]
  - ARTHRALGIA [None]
  - BACK PAIN [None]
  - HYPERKERATOSIS [None]
  - PAIN IN EXTREMITY [None]
  - MEDICAL DEVICE COMPLICATION [None]
  - RHEUMATOID ARTHRITIS [None]
  - MALAISE [None]
  - ARTHROPATHY [None]
